FAERS Safety Report 16468427 (Version 4)
Quarter: 2019Q3

REPORT INFORMATION
  Report Type: Spontaneous
  Country: JP (occurrence: JP)
  Receive Date: 20190624
  Receipt Date: 20190919
  Transmission Date: 20191004
  Serious: Yes (Hospitalization, Other)
  Sender: FDA-Public Use
  Company Number: JP-009507513-1906JPN002145J

PATIENT
  Age: 6 Decade
  Sex: Male

DRUGS (3)
  1. SULPIRIDE [Concomitant]
     Active Substance: SULPIRIDE
     Dosage: UNK
     Route: 065
  2. REFLEX [Suspect]
     Active Substance: MIRTAZAPINE
     Dosage: UNK
     Route: 048
  3. ETIZOLAM [Suspect]
     Active Substance: ETIZOLAM
     Dosage: UNK
     Route: 048

REACTIONS (1)
  - Drug-induced liver injury [Unknown]
